FAERS Safety Report 5157897-X (Version None)
Quarter: 2006Q4

REPORT INFORMATION
  Report Type: 
  Country: None (occurrence: None)
  Receive Date: 20061116
  Receipt Date: 20061103
  Transmission Date: 20070319
  Serious: Yes (Other)
  Sender: FDA-Public Use
  Company Number: 2006136980

PATIENT
  Age: 60 Year
  Sex: Female
  Weight: 85.7298 kg

DRUGS (8)
  1. ZYRTEC-D 12 HOUR [Suspect]
     Indication: HYPERSENSITIVITY
     Dosage: 10 YRS AGO - STOPPED
  2. CORTEF [Suspect]
     Indication: ADRENAL CORTICAL INSUFFICIENCY
     Dosage: 15 MG IN AM, 5 MG AT NIGHT (2 IN 1 D)
     Dates: start: 20000101
  3. CORTISONE ACETATE [Suspect]
     Indication: ADRENAL CORTICAL INSUFFICIENCY
     Dosage: 15 MG IN AM, 5 MG AT NIGHT (2 IN 1 D); 25 YRS AGO
  4. ALL OTHER THERAPEUTIC PRODUCTS (ALL OTHER THERAPEUTIC PRODUCTS) [Suspect]
     Indication: BLOOD PRESSURE
     Dates: start: 20060101
  5. ZETIA [Concomitant]
  6. SYNTHROID [Concomitant]
  7. DDAVP [Concomitant]
  8. ALL OTHER THERAPEUTIC PRODUCTS (ALL OTHER THERAPEUTIC PRODUCTS) [Concomitant]

REACTIONS (11)
  - ABASIA [None]
  - ASTHENIA [None]
  - BLOOD PRESSURE INCREASED [None]
  - DIZZINESS [None]
  - DRUG INEFFECTIVE [None]
  - FATIGUE [None]
  - FEELING ABNORMAL [None]
  - HYPERTENSION [None]
  - INTRAOCULAR PRESSURE INCREASED [None]
  - MALAISE [None]
  - UNEVALUABLE EVENT [None]
